FAERS Safety Report 9655515 (Version 1)
Quarter: 2013Q4

REPORT INFORMATION
  Report Type: Report from Study
  Country: KE (occurrence: KE)
  Receive Date: 20131029
  Receipt Date: 20131029
  Transmission Date: 20140711
  Serious: Yes (Death, Hospitalization, Other)
  Sender: FDA-Public Use
  Company Number: KE-GILEAD-2013-0086052

PATIENT
  Age: 43 Year
  Sex: Male

DRUGS (20)
  1. TENOFOVIR DISOPROXIL FUMARATE [Suspect]
     Indication: HIV INFECTION
     Dosage: 1 UNK, UNK
     Route: 048
     Dates: start: 20130918, end: 20131004
  2. EMTRICITABINE [Suspect]
     Indication: HIV INFECTION
     Dosage: UNK
     Dates: start: 20130918, end: 20131004
  3. EFAVIRENZ [Suspect]
     Indication: HIV INFECTION
     Dosage: UNK
     Dates: start: 20130918, end: 20131004
  4. COTRIMOXAZOLE [Suspect]
     Dosage: UNK
     Dates: start: 20130904
  5. PYRIDOXINE [Suspect]
     Dosage: UNK
     Dates: start: 20130918
  6. FLUCONAZOLE [Suspect]
     Dosage: UNK
     Dates: start: 20130918
  7. RUSF [Suspect]
     Dosage: UNK
     Dates: start: 20130918
  8. RIFAMPICIN [Suspect]
     Dosage: UNK
     Dates: start: 20130830
  9. ISONIAZID [Suspect]
     Dosage: UNK
     Dates: start: 20130830
  10. PYRAZINAMIDE [Suspect]
     Dosage: UNK
     Dates: start: 20130830
  11. ETHAMBUTOL [Suspect]
     Dosage: UNK
     Dates: start: 20130830
  12. AZITHROMYCIN [Suspect]
     Dosage: UNK
     Dates: start: 20130918, end: 20130922
  13. ALBENDAZOLE [Suspect]
     Dosage: UNK
     Dates: start: 20130918, end: 20130918
  14. VITAMIN A                          /00056001/ [Suspect]
     Dosage: UNK
     Dates: start: 20130830, end: 20130830
  15. XPEN [Suspect]
     Dosage: UNK
     Dates: start: 20131006, end: 20131008
  16. GENTAMYCIN                         /00047101/ [Suspect]
     Dosage: UNK
     Dates: start: 20131006, end: 20131008
  17. FLAGYL                             /00012501/ [Suspect]
     Dosage: UNK
     Dates: start: 20131006, end: 20131009
  18. PLASIL                             /00041901/ [Suspect]
     Dosage: UNK
     Dates: start: 20131006, end: 20131009
  19. CIPROFLOXACIN [Suspect]
     Dosage: UNK
     Dates: start: 20131008, end: 20131009
  20. LOPERAMIDE [Suspect]
     Dosage: UNK
     Dates: start: 20131002, end: 20131004

REACTIONS (4)
  - Renal failure acute [Not Recovered/Not Resolved]
  - Pulmonary tuberculosis [Fatal]
  - Gastroenteritis [Fatal]
  - Anaemia [Fatal]
